FAERS Safety Report 22252361 (Version 7)
Quarter: 2024Q3

REPORT INFORMATION
  Report Type: Report from Study
  Country: JP (occurrence: JP)
  Receive Date: 20230426
  Receipt Date: 20240819
  Transmission Date: 20241017
  Serious: Yes (Death, Hospitalization)
  Sender: ABBVIE
  Company Number: JP-ABBVIE-21K-087-4083102-00

PATIENT
  Age: 89 Year
  Sex: Male

DRUGS (6)
  1. RINVOQ [Suspect]
     Active Substance: UPADACITINIB
     Indication: Parkinson^s disease
     Route: 048
     Dates: start: 20210603, end: 20220928
  2. RINVOQ [Suspect]
     Active Substance: UPADACITINIB
     Indication: Parkinson^s disease
     Dosage: LAST ADMIN DATE-2021
     Route: 048
     Dates: start: 20210422
  3. RINVOQ [Suspect]
     Active Substance: UPADACITINIB
     Indication: Parkinson^s disease
     Dosage: LAST ADMIN DATE-2021
     Route: 048
     Dates: start: 20210507
  4. SULFASALAZINE [Concomitant]
     Active Substance: SULFASALAZINE
     Indication: Rheumatoid arthritis
  5. RABEPRAZOLE SODIUM [Concomitant]
     Active Substance: RABEPRAZOLE SODIUM
     Indication: Product used for unknown indication
     Route: 048
  6. REBAMIPIDE [Concomitant]
     Active Substance: REBAMIPIDE
     Indication: Product used for unknown indication
     Route: 048

REACTIONS (6)
  - Pneumonia [Fatal]
  - C-reactive protein increased [Recovering/Resolving]
  - Fall [Recovered/Resolved]
  - Hepatic enzyme increased [Recovered/Resolved]
  - Polymyalgia rheumatica [Recovering/Resolving]
  - Cerebral infarction [Not Recovered/Not Resolved]

NARRATIVE: CASE EVENT DATE: 20210422
